FAERS Safety Report 6941112-8 (Version None)
Quarter: 2010Q3

REPORT INFORMATION
  Report Type: 
  Country: None (occurrence: None)
  Receive Date: 20100825
  Receipt Date: 20100818
  Transmission Date: 20110219
  Serious: Yes (Hospitalization)
  Sender: FDA-Public Use
  Company Number: DE-BRISTOL-MYERS SQUIBB COMPANY-15253990

PATIENT
  Age: 75 Year
  Sex: Male

DRUGS (5)
  1. CETUXIMAB [Suspect]
     Indication: HEAD AND NECK CANCER
     Dosage: DAY 1 OF CYCLE 1, THEN 250MG/M2. LAST DOSE ON 16JUL10
     Route: 042
     Dates: start: 20100611
  2. CISPLATIN [Suspect]
     Indication: HEAD AND NECK CANCER
     Dosage: RECENT DOSE ON 02JUL10
     Route: 042
     Dates: start: 20100611
  3. PEMETREXED DISODIUM [Suspect]
     Indication: HEAD AND NECK CANCER
     Dosage: RECENT DOSE ON 02JUL10
     Route: 042
     Dates: start: 20100611
  4. FOLIC ACID [Concomitant]
     Indication: PROPHYLAXIS
     Dates: start: 20100526
  5. VITAMIN B-12 [Concomitant]
     Indication: PROPHYLAXIS
     Dates: start: 20100526

REACTIONS (1)
  - MUCOSAL INFLAMMATION [None]
